FAERS Safety Report 11769954 (Version 1)
Quarter: 2015Q4

REPORT INFORMATION
  Report Type: Spontaneous
  Country: US (occurrence: US)
  Receive Date: 20151123
  Receipt Date: 20151123
  Transmission Date: 20160304
  Serious: Yes (Other)
  Sender: FDA-Public Use
  Company Number: PHHY2015US148974

PATIENT
  Age: 67 Year
  Sex: Female

DRUGS (5)
  1. ATROPINE SULFATE. [Interacting]
     Active Substance: ATROPINE SULFATE
     Indication: ATRIAL FLUTTER
     Dosage: 2 MG, UNK
     Route: 065
  2. METHOHEXITAL [Interacting]
     Active Substance: METHOHEXITAL
     Indication: PRODUCT USED FOR UNKNOWN INDICATION
     Dosage: 20 MG, UNK
     Route: 065
  3. FENTANYL. [Interacting]
     Active Substance: FENTANYL
     Indication: ATRIAL FLUTTER
     Dosage: 50 UG, UNK
     Route: 065
  4. MIDAZOLAM [Interacting]
     Active Substance: MIDAZOLAM\MIDAZOLAM HYDROCHLORIDE
     Indication: ATRIAL FLUTTER
     Dosage: 3 MG, UNK
  5. FLUMAZENIL. [Suspect]
     Active Substance: FLUMAZENIL
     Indication: REVERSAL OF SEDATION
     Dosage: 0.25 MG, UNK
     Route: 065

REACTIONS (2)
  - Drug interaction [Unknown]
  - Nervous system disorder [Recovering/Resolving]
